FAERS Safety Report 19421658 (Version 1)
Quarter: 2021Q2

REPORT INFORMATION
  Report Type: Spontaneous
  Country: GB (occurrence: GB)
  Receive Date: 20210615
  Receipt Date: 20210615
  Transmission Date: 20210717
  Serious: Yes (Death, Other)
  Sender: FDA-Public Use
  Company Number: GB-BAXTER-2021BAX015386

PATIENT
  Age: 5 Year
  Sex: Male

DRUGS (4)
  1. VEPESID [Suspect]
     Active Substance: ETOPOSIDE
     Indication: NEOPLASM MALIGNANT
     Route: 065
  2. CISPLATIN. [Suspect]
     Active Substance: CISPLATIN
     Indication: NEOPLASM MALIGNANT
     Route: 065
  3. VINCRISTINE [Suspect]
     Active Substance: VINCRISTINE
     Indication: NEOPLASM MALIGNANT
     Route: 065
  4. CYCLOPHOSPHAMIDE INJECTION 1G [Suspect]
     Active Substance: CYCLOPHOSPHAMIDE
     Indication: NEOPLASM MALIGNANT
     Route: 065

REACTIONS (9)
  - Diarrhoea [Unknown]
  - Headache [Unknown]
  - Rectal prolapse [Unknown]
  - Illness [Unknown]
  - Mouth ulceration [Unknown]
  - Feeding disorder [Unknown]
  - Death [Fatal]
  - Acute kidney injury [Unknown]
  - Pain [Unknown]

NARRATIVE: CASE EVENT DATE: 2019
